FAERS Safety Report 9697831 (Version 1)
Quarter: 2013Q4

REPORT INFORMATION
  Report Type: Spontaneous
  Country: US (occurrence: US)
  Receive Date: 20131120
  Receipt Date: 20131120
  Transmission Date: 20140711
  Serious: No
  Sender: FDA-Public Use
  Company Number: US-BAYER-2013-141895

PATIENT
  Age: 80 Year
  Sex: Male
  Weight: 108.84 kg

DRUGS (3)
  1. ALEVE CAPLET [Suspect]
     Indication: BACK PAIN
     Dosage: 1 DF, PRN
     Route: 048
     Dates: start: 201310
  2. ALEVE CAPLET [Suspect]
     Indication: BACK PAIN
     Dosage: 4 DF, UNK
  3. HYDROCODONE [Concomitant]

REACTIONS (2)
  - Dyspnoea [Recovered/Resolved]
  - Incorrect dose administered [None]
